FAERS Safety Report 7209580-4 (Version None)
Quarter: 2011Q1

REPORT INFORMATION
  Report Type: 
  Country: None (occurrence: None)
  Receive Date: 20110104
  Receipt Date: 20101230
  Transmission Date: 20110831
  Serious: Yes (Other)
  Sender: FDA-Public Use
  Company Number: US-PFIZER INC-2005026352

PATIENT
  Sex: Female
  Weight: 48 kg

DRUGS (8)
  1. COREX [Concomitant]
  2. VALSARTAN [Concomitant]
     Dosage: UNK
  3. WARFARIN [Interacting]
     Indication: HEART VALVE REPLACEMENT
     Dosage: UNK
     Route: 065
  4. LYRICA [Concomitant]
     Dosage: UNK
  5. AMBIEN [Concomitant]
     Dosage: 5 MG, UNK
     Route: 048
  6. CELEBREX [Suspect]
     Indication: ARTHRALGIA
     Dosage: 200 MG, 2X/DAY
     Route: 048
  7. CELEBREX [Interacting]
     Dosage: 200 MG, 1X/DAY
     Route: 048
     Dates: start: 20000101, end: 20100901
  8. ESTRADIOL [Concomitant]
     Dosage: UNK

REACTIONS (6)
  - DRUG INTERACTION [None]
  - CARDIAC DISORDER [None]
  - DRUG LEVEL INCREASED [None]
  - BLOOD URINE PRESENT [None]
  - HAEMORRHAGE [None]
  - ABDOMINAL PAIN UPPER [None]
